FAERS Safety Report 16576522 (Version 1)
Quarter: 2019Q3

REPORT INFORMATION
  Report Type: Other
  Country: US (occurrence: US)
  Receive Date: 20190716
  Receipt Date: 20190716
  Transmission Date: 20191004
  Serious: No
  Sender: FDA-Public Use
  Company Number: US-SWEDISH ORPHAN BIOVITRUM-2018US1239

PATIENT
  Sex: Male

DRUGS (4)
  1. ORFADIN [Suspect]
     Active Substance: NITISINONE
     Indication: AMINO ACID METABOLISM DISORDER
     Route: 048
     Dates: start: 20180322
  2. ORFADIN [Suspect]
     Active Substance: NITISINONE
     Indication: ALKAPTONURIA
  3. IBUPROFEN. [Concomitant]
     Active Substance: IBUPROFEN
  4. BENICAR [Concomitant]
     Active Substance: OLMESARTAN MEDOXOMIL

REACTIONS (2)
  - Dyspnoea [Unknown]
  - Amino acid level increased [Unknown]
